APPROVED DRUG PRODUCT: FENTANYL-75
Active Ingredient: FENTANYL
Strength: 75MCG/HR
Dosage Form/Route: FILM, EXTENDED RELEASE;TRANSDERMAL
Application: A209655 | Product #006
Applicant: ZYDUS PHARMACEUTICALS USA INC
Approved: Jan 24, 2023 | RLD: No | RS: No | Type: DISCN